FAERS Safety Report 23449407 (Version 1)
Quarter: 2024Q1

REPORT INFORMATION
  Report Type: Spontaneous
  Country: US (occurrence: US)
  Receive Date: 20240129
  Receipt Date: 20240129
  Transmission Date: 20240410
  Serious: No
  Sender: FDA-Public Use
  Company Number: US-TARSUS PHARMACEUTICALS-TSP-US-2024-000004

PATIENT
  Sex: Female

DRUGS (1)
  1. XDEMVY [Suspect]
     Active Substance: LOTILANER
     Indication: Demodex blepharitis
     Dosage: 1 DROP, BID ( INTO EACH EYE)
     Route: 047
     Dates: start: 202312

REACTIONS (4)
  - Device breakage [Unknown]
  - Product delivery mechanism issue [Unknown]
  - Accidental exposure to product [Unknown]
  - Product dose omission issue [Unknown]
